FAERS Safety Report 6162552-3 (Version None)
Quarter: 2009Q2

REPORT INFORMATION
  Report Type: 
  Country: None (occurrence: None)
  Receive Date: 20090421
  Receipt Date: 20090409
  Transmission Date: 20091009
  Serious: Yes (Death, Hospitalization, Other)
  Sender: FDA-Public Use
  Company Number: US-PFIZER INC-2009185442

PATIENT
  Sex: Male

DRUGS (7)
  1. SUTENT [Suspect]
     Indication: RENAL CELL CARCINOMA
     Dosage: 50 MG, 1X/DAY (4 WEEKS ON, 2 WEEKS OFF)
     Route: 048
     Dates: start: 20080801, end: 20090301
  2. NEURONTIN [Concomitant]
  3. MAGIC MOUTHWASH [Concomitant]
  4. ASPIRIN [Concomitant]
  5. ANTIHYPERTENSIVES [Concomitant]
  6. DIURETICS [Concomitant]
  7. PRILOSEC [Suspect]

REACTIONS (5)
  - DEPRESSED LEVEL OF CONSCIOUSNESS [None]
  - DISEASE PROGRESSION [None]
  - GENERALISED OEDEMA [None]
  - RENAL CELL CARCINOMA [None]
  - UNRESPONSIVE TO STIMULI [None]
